FAERS Safety Report 21885696 (Version 1)
Quarter: 2023Q1

REPORT INFORMATION
  Report Type: Spontaneous
  Country: BE (occurrence: BE)
  Receive Date: 20230119
  Receipt Date: 20230119
  Transmission Date: 20230418
  Serious: Yes (Other)
  Sender: FDA-Public Use
  Company Number: BE-JNJFOC-20230124251

PATIENT
  Age: 1 Decade
  Sex: Male

DRUGS (1)
  1. VERMOX [Suspect]
     Active Substance: MEBENDAZOLE
     Indication: Product used for unknown indication
     Route: 048
     Dates: start: 20221211

REACTIONS (2)
  - Brain oedema [Unknown]
  - Tinnitus [Unknown]

NARRATIVE: CASE EVENT DATE: 20221201
